FAERS Safety Report 8004369-0 (Version None)
Quarter: 2011Q4

REPORT INFORMATION
  Report Type: 
  Country: None (occurrence: None)
  Receive Date: 20111223
  Receipt Date: 20111213
  Transmission Date: 20120403
  Serious: No
  Sender: FDA-Public Use
  Company Number: US-BIOGENIDEC-2011BI047185

PATIENT
  Age: 58 Year
  Sex: Female

DRUGS (3)
  1. AVONEX [Suspect]
     Route: 030
     Dates: start: 20090301
  2. AVONEX [Suspect]
     Route: 030
     Dates: start: 19981101, end: 20040706
  3. AVONEX [Suspect]
     Indication: MULTIPLE SCLEROSIS
     Route: 030
     Dates: start: 20111020

REACTIONS (3)
  - OSTEOPOROSIS [None]
  - MOVEMENT DISORDER [None]
  - STRESS [None]
